FAERS Safety Report 19920489 (Version 2)
Quarter: 2021Q4

REPORT INFORMATION
  Report Type: Spontaneous
  Country: BR (occurrence: BR)
  Receive Date: 20211005
  Receipt Date: 20211007
  Transmission Date: 20220304
  Serious: Yes (Hospitalization)
  Sender: FDA-Public Use
  Company Number: BR-ALXN-A202110917

PATIENT
  Age: 20 Month
  Sex: Male

DRUGS (4)
  1. SOLIRIS [Suspect]
     Active Substance: ECULIZUMAB
     Indication: Atypical haemolytic uraemic syndrome
     Dosage: FIRST INFUSION
     Route: 042
  2. SOLIRIS [Suspect]
     Active Substance: ECULIZUMAB
     Dosage: AFTER APPROXIMATELY 4 OR 5 MONTHS HE RECEIVED ANOTHER DOSE
     Route: 042
  3. SOLIRIS [Suspect]
     Active Substance: ECULIZUMAB
     Dosage: AFTER 3 MONTHS ANOTHER DOSE
     Route: 042
  4. SOLIRIS [Suspect]
     Active Substance: ECULIZUMAB
     Dosage: AFTER APPROXIMATELY 6 MONTHS HE RECEIVED ANOTHER DOSE
     Route: 042

REACTIONS (4)
  - General physical health deterioration [Not Recovered/Not Resolved]
  - Haemodialysis [Not Recovered/Not Resolved]
  - Malaise [Not Recovered/Not Resolved]
  - Off label use [Unknown]
